FAERS Safety Report 6770274-0 (Version None)
Quarter: 2010Q2

REPORT INFORMATION
  Report Type: 
  Country: None (occurrence: None)
  Receive Date: 20100610
  Receipt Date: 20100510
  Transmission Date: 20101027
  Serious: Yes (Death, Hospitalization)
  Sender: FDA-Public Use
  Company Number: 2010052365

PATIENT
  Age: 70 Year
  Sex: Male

DRUGS (2)
  1. HEPARIN [Suspect]
     Dosage: IV BOLUS
     Route: 040
  2. FRAGMIN [Suspect]
     Dosage: SUBCUTANEOUS
     Route: 058

REACTIONS (14)
  - ARTERIAL THROMBOSIS LIMB [None]
  - ARTHRITIS [None]
  - CEREBRAL INFARCTION [None]
  - DYSARTHRIA [None]
  - EXOSTOSIS [None]
  - FINGER AMPUTATION [None]
  - GOUT [None]
  - HEPARIN-INDUCED THROMBOCYTOPENIA [None]
  - HYPERHIDROSIS [None]
  - LEG AMPUTATION [None]
  - MUSCULAR WEAKNESS [None]
  - MYOCARDIAL INFARCTION [None]
  - PULMONARY OEDEMA [None]
  - WHITE CLOT SYNDROME [None]
